FAERS Safety Report 25350223 (Version 4)
Quarter: 2025Q3

REPORT INFORMATION
  Report Type: Spontaneous
  Country: US (occurrence: US)
  Receive Date: 20250523
  Receipt Date: 20250829
  Transmission Date: 20251020
  Serious: No
  Sender: BIOGEN
  Company Number: US-BIOGEN-2025BI01301188

PATIENT
  Sex: Female

DRUGS (5)
  1. VUMERITY [Suspect]
     Active Substance: DIROXIMEL FUMARATE
     Indication: Multiple sclerosis
     Dosage: 1-231 MG CAPSULE BY MOUTH TWO TIMES A DAY FOR 7 DAYS, THEN 2-231 MG CAPSULES (462MG) TWO TIMES A ...
     Route: 050
     Dates: start: 20250213, end: 20250219
  2. VUMERITY [Suspect]
     Active Substance: DIROXIMEL FUMARATE
     Route: 050
     Dates: start: 20250220
  3. SKYRIZI [Concomitant]
     Active Substance: RISANKIZUMAB-RZAA
     Route: 050
     Dates: start: 202502
  4. SKYRIZI [Concomitant]
     Active Substance: RISANKIZUMAB-RZAA
     Route: 050
     Dates: start: 20250418
  5. SKYRIZI [Concomitant]
     Active Substance: RISANKIZUMAB-RZAA
     Dosage: 50MG/ML PEN
     Route: 050
     Dates: start: 2025

REACTIONS (18)
  - Intentional dose omission [Unknown]
  - Inappropriate schedule of product administration [Unknown]
  - Product dose omission in error [Unknown]
  - Multiple sclerosis relapse [Unknown]
  - Paraesthesia [Unknown]
  - Sluggishness [Unknown]
  - Dairy intolerance [Unknown]
  - Abdominal discomfort [Unknown]
  - Dyspnoea [Unknown]
  - Chest pain [Unknown]
  - Dizziness [Unknown]
  - Fall [Recovered/Resolved]
  - Abdominal pain upper [Unknown]
  - Feeling hot [Unknown]
  - Flushing [Unknown]
  - Diarrhoea [Unknown]
  - Urticaria [Unknown]
  - Pruritus [Unknown]

NARRATIVE: CASE EVENT DATE: 20250101
